FAERS Safety Report 16985702 (Version 1)
Quarter: 2019Q4

REPORT INFORMATION
  Report Type: Spontaneous
  Country: US (occurrence: US)
  Receive Date: 20191031
  Receipt Date: 20191031
  Transmission Date: 20200122
  Serious: Yes (Other)
  Sender: FDA-Public Use
  Company Number: None

PATIENT
  Age: 37 Year
  Sex: Female
  Weight: 67.5 kg

DRUGS (4)
  1. VITAMIN D [Concomitant]
     Active Substance: VITAMIN D NOS
  2. SYNTHROID [Concomitant]
     Active Substance: LEVOTHYROXINE SODIUM
  3. ZANTAC [Suspect]
     Active Substance: RANITIDINE HYDROCHLORIDE
     Indication: RASH
     Dosage: ?          QUANTITY:1 TABLET(S);?
     Route: 048
     Dates: start: 20000201, end: 20020501
  4. GLUCOSOMINE [Concomitant]

REACTIONS (7)
  - Onychoclasis [None]
  - Keratosis follicular [None]
  - Nail disorder [None]
  - Arthralgia [None]
  - Urticaria [None]
  - Paraesthesia [None]
  - Nail growth abnormal [None]

NARRATIVE: CASE EVENT DATE: 20010101
